FAERS Safety Report 19085433 (Version 1)
Quarter: 2021Q2

REPORT INFORMATION
  Report Type: Spontaneous
  Country: DE (occurrence: DE)
  Receive Date: 20210402
  Receipt Date: 20210402
  Transmission Date: 20210717
  Serious: Yes (Other)
  Sender: FDA-Public Use
  Company Number: DE-AUROBINDO-AUR-APL-2021-012848

PATIENT
  Age: 70 Year
  Sex: Female

DRUGS (3)
  1. TRAMADOL. [Interacting]
     Active Substance: TRAMADOL
     Dosage: 20 MILLIGRAM, ONCE A DAY (1 YEAR LATER)
     Route: 065
  2. CITALOPRAM [Suspect]
     Active Substance: CITALOPRAM HYDROBROMIDE
     Indication: DEPRESSION
     Dosage: 10 MILLIGRAM, ONCE A DAY
     Route: 065
  3. TRAMADOL. [Interacting]
     Active Substance: TRAMADOL
     Indication: PROCEDURAL PAIN
     Dosage: 50 MILLIGRAM, ONCE A DAY
     Route: 065

REACTIONS (8)
  - Serotonin syndrome [Unknown]
  - Confusional state [Unknown]
  - Hallucination, visual [Unknown]
  - Restlessness [Unknown]
  - Drug metabolising enzyme decreased [Unknown]
  - Drug interaction [Unknown]
  - Tremor [Unknown]
  - Pyrexia [Unknown]
